FAERS Safety Report 8953661 (Version 1)
Quarter: 2012Q4

REPORT INFORMATION
  Report Type: 
  Country: US (occurrence: US)
  Receive Date: 20121206
  Receipt Date: 20121206
  Transmission Date: 20130627
  Serious: Yes (Other)
  Sender: FDA-Public Use
  Company Number: US-BAXTER-2012BAX026195

PATIENT
  Age: 30 Day
  Sex: Male

DRUGS (6)
  1. CYCLOPHOSPHAMIDE FOR INJECTION, USP [Suspect]
     Indication: DRUG EXPOSURE VIA MOTHER
     Route: 064
  2. RITUXIMAB [Suspect]
     Indication: DRUG EXPOSURE VIA MOTHER
     Route: 064
  3. DOXORUBICIN [Suspect]
     Indication: DRUG EXPOSURE VIA MOTHER
     Route: 064
  4. VINCRISTINE [Suspect]
     Indication: DRUG EXPOSURE VIA MOTHER
     Route: 064
  5. PREDNISONE [Suspect]
     Indication: DRUG EXPOSURE VIA MOTHER
     Route: 064
  6. HEPATITIS B VACCINE [Concomitant]
     Indication: PROPHYLACTIC VACCINATION

REACTIONS (2)
  - Foetal exposure during pregnancy [Recovered/Resolved]
  - Secondary immunodeficiency [Recovered/Resolved]
